FAERS Safety Report 7759771-9 (Version None)
Quarter: 2011Q3

REPORT INFORMATION
  Report Type: 
  Country: None (occurrence: None)
  Receive Date: 20110919
  Receipt Date: 20110914
  Transmission Date: 20111222
  Serious: Yes (Death)
  Sender: FDA-Public Use
  Company Number: PHHY2011DE82700

PATIENT
  Age: 59 Year
  Sex: Male

DRUGS (3)
  1. METHYLPREDNISOLONE [Suspect]
     Indication: DERMATOMYOSITIS
  2. CYCLOPHOSPHAMIDE [Suspect]
     Indication: DERMATOMYOSITIS
  3. DEXAMETHASONE [Suspect]
     Indication: DERMATOMYOSITIS
     Dosage: 100 MG/ DAY
     Route: 042

REACTIONS (1)
  - PNEUMONIA [None]
